FAERS Safety Report 14193901 (Version 1)
Quarter: 2017Q4

REPORT INFORMATION
  Report Type: Report from Study
  Country: DE (occurrence: DE)
  Receive Date: 20171116
  Receipt Date: 20171116
  Transmission Date: 20180321
  Serious: Yes (Other)
  Sender: FDA-Public Use
  Company Number: DE-ROCHE-2024635

PATIENT
  Age: 78 Year
  Sex: Male

DRUGS (2)
  1. BEVACIZUMAB. [Suspect]
     Active Substance: BEVACIZUMAB
     Indication: RENAL CELL CARCINOMA
     Route: 042
     Dates: start: 20120522, end: 20140702
  2. INTERFERON ALFA-2A [Suspect]
     Active Substance: INTERFERON ALFA-2A
     Indication: RENAL CELL CARCINOMA
     Route: 065
     Dates: start: 20120522, end: 20140702

REACTIONS (27)
  - Dysphonia [Unknown]
  - Mucosal inflammation [Unknown]
  - Pain in jaw [Unknown]
  - Fatigue [Unknown]
  - Dyspnoea [Unknown]
  - Haemangioma [Unknown]
  - Leukopenia [Unknown]
  - Nausea [Unknown]
  - Peripheral coldness [Unknown]
  - Skin disorder [Unknown]
  - Neutropenia [Unknown]
  - Hypertension [Unknown]
  - Thrombocytopenia [Unknown]
  - Vomiting [Unknown]
  - Diarrhoea [Unknown]
  - Ear discomfort [Unknown]
  - Peripheral sensory neuropathy [Unknown]
  - Acne [Unknown]
  - Anaemia [Unknown]
  - Dizziness [Unknown]
  - Weight decreased [Unknown]
  - Mucosal inflammation [Unknown]
  - Epistaxis [Unknown]
  - Palmar-plantar erythrodysaesthesia syndrome [Unknown]
  - Cardiac failure [Unknown]
  - Nail disorder [Unknown]
  - Pruritus [Unknown]

NARRATIVE: CASE EVENT DATE: 20120703
